FAERS Safety Report 14980326 (Version 1)
Quarter: 2018Q2

REPORT INFORMATION
  Report Type: Report from Study
  Country: BR (occurrence: BR)
  Receive Date: 20180606
  Receipt Date: 20180606
  Transmission Date: 20180711
  Serious: Yes (Other)
  Sender: FDA-Public Use
  Company Number: PHHY2018BR035342

PATIENT
  Age: 38 Year
  Sex: Female
  Weight: 104 kg

DRUGS (3)
  1. COSENTYX [Suspect]
     Active Substance: SECUKINUMAB
     Indication: ERYTHRODERMIC PSORIASIS
     Dosage: EVERY 15 DAYS
     Route: 058
  2. COSENTYX [Suspect]
     Active Substance: SECUKINUMAB
     Indication: PSORIATIC ARTHROPATHY
     Dosage: 300 MG (2 PENS), QMO
     Route: 058
     Dates: start: 20170420
  3. COSENTYX [Suspect]
     Active Substance: SECUKINUMAB
     Indication: PSORIASIS
     Dosage: UNK
     Route: 065
     Dates: start: 20180205

REACTIONS (35)
  - Erythema [Recovering/Resolving]
  - Peripheral swelling [Recovering/Resolving]
  - Spinal disorder [Unknown]
  - Ocular hyperaemia [Unknown]
  - Throat irritation [Recovering/Resolving]
  - Pyrexia [Recovering/Resolving]
  - Headache [Recovering/Resolving]
  - Eye pruritus [Unknown]
  - Oropharyngeal pain [Recovering/Resolving]
  - Decreased immune responsiveness [Unknown]
  - Abdominal distension [Unknown]
  - Influenza [Recovering/Resolving]
  - Conjunctivitis viral [Recovering/Resolving]
  - Skin exfoliation [Recovering/Resolving]
  - Panic reaction [Unknown]
  - Dysphonia [Recovered/Resolved]
  - Pigmentation disorder [Unknown]
  - Malaise [Recovered/Resolved]
  - Conjunctivitis bacterial [Recovering/Resolving]
  - Pruritus [Recovering/Resolving]
  - Infection [Unknown]
  - Swelling [Not Recovered/Not Resolved]
  - Skin lesion [Recovering/Resolving]
  - Pain [Recovering/Resolving]
  - Rash papular [Not Recovered/Not Resolved]
  - Anxiety [Unknown]
  - Tension [Unknown]
  - Oropharyngeal pain [Recovered/Resolved]
  - Conjunctivitis [Unknown]
  - Body height decreased [Unknown]
  - Fatigue [Unknown]
  - Nasal congestion [Recovering/Resolving]
  - Cough [Recovered/Resolved]
  - Psoriasis [Unknown]
  - Condition aggravated [Recovering/Resolving]

NARRATIVE: CASE EVENT DATE: 201802
